FAERS Safety Report 18437853 (Version 2)
Quarter: 2020Q4

REPORT INFORMATION
  Report Type: Spontaneous
  Country: IT (occurrence: IT)
  Receive Date: 20201028
  Receipt Date: 20201221
  Transmission Date: 20210114
  Serious: Yes (Life-Threatening, Hospitalization, Other)
  Sender: FDA-Public Use
  Company Number: IT-SCIEGEN-2020SCILIT00354

PATIENT
  Age: 49 Year
  Sex: Female

DRUGS (5)
  1. NOREPINEPHRINE. [Interacting]
     Active Substance: NOREPINEPHRINE
     Indication: SHOCK
     Route: 065
  2. EPINEPHRINE. [Interacting]
     Active Substance: EPINEPHRINE
     Indication: SHOCK
     Route: 065
  3. QUETIAPINE. [Suspect]
     Active Substance: QUETIAPINE
     Indication: PRODUCT USED FOR UNKNOWN INDICATION
     Route: 065
  4. TRAMADOL. [Suspect]
     Active Substance: TRAMADOL
     Indication: PRODUCT USED FOR UNKNOWN INDICATION
     Route: 065
  5. VASOPRESSIN. [Interacting]
     Active Substance: VASOPRESSIN
     Indication: SHOCK
     Route: 065

REACTIONS (12)
  - Toxicity to various agents [Unknown]
  - Hepatic failure [Unknown]
  - Loss of consciousness [Recovered/Resolved]
  - Metabolic encephalopathy [Recovered/Resolved]
  - Overdose [Unknown]
  - Left ventricular dilatation [Recovered/Resolved]
  - Shock [Unknown]
  - Mitral valve incompetence [Unknown]
  - Acute kidney injury [Recovering/Resolving]
  - Mydriasis [Recovered/Resolved]
  - Acidosis [Unknown]
  - Shock [Recovered/Resolved]
